FAERS Safety Report 7137034-2 (Version None)
Quarter: 2010Q4

REPORT INFORMATION
  Report Type: 
  Country: None (occurrence: None)
  Receive Date: 20101206
  Receipt Date: 20061209
  Transmission Date: 20110411
  Serious: Yes (Death, Hospitalization)
  Sender: FDA-Public Use
  Company Number: US-ACTELION-A-US2005-11137

PATIENT

DRUGS (1)
  1. BOSENTAN TABLET 62.5 MG US [Suspect]
     Indication: PULMONARY HYPERTENSION
     Route: 048
     Dates: end: 20061208

REACTIONS (3)
  - DEATH [None]
  - OEDEMA PERIPHERAL [None]
  - RASH [None]
